FAERS Safety Report 6371870-5 (Version None)
Quarter: 2009Q3

REPORT INFORMATION
  Report Type: 
  Country: None (occurrence: None)
  Receive Date: 20090923
  Receipt Date: 20090914
  Transmission Date: 20100115
  Serious: Yes (Other)
  Sender: FDA-Public Use
  Company Number: PHHY2009FR39895

PATIENT

DRUGS (1)
  1. ACLASTA [Suspect]

REACTIONS (1)
  - CEREBROVASCULAR ACCIDENT [None]
